FAERS Safety Report 8834088 (Version 1)
Quarter: 2012Q4

REPORT INFORMATION
  Report Type: 
  Country: US (occurrence: US)
  Receive Date: 20121010
  Receipt Date: 20121010
  Transmission Date: 20130627
  Serious: No
  Sender: FDA-Public Use
  Company Number: US-ASTRAZENECA-2012SE75365

PATIENT
  Sex: Male

DRUGS (4)
  1. SEROQUEL XR [Suspect]
     Indication: SLEEP DISORDER
     Route: 048
  2. SEROQUEL XR [Suspect]
     Indication: DEPRESSION
     Route: 048
  3. SEROQUEL XR [Suspect]
     Indication: ANXIETY
     Route: 048
  4. SEROQUEL XR [Suspect]
     Indication: SCHIZOPHRENIA
     Route: 048

REACTIONS (2)
  - Insomnia [Unknown]
  - Drug dose omission [Unknown]
